FAERS Safety Report 9035241 (Version 1)
Quarter: 2013Q1

REPORT INFORMATION
  Report Type: Report from Study
  Country: US (occurrence: US)
  Receive Date: 20130129
  Receipt Date: 20130129
  Transmission Date: 20140127
  Serious: No
  Sender: FDA-Public Use
  Company Number: US-ABBOTT-12P-163-0898056-00

PATIENT
  Age: 66 Year
  Sex: Male

DRUGS (5)
  1. HUMIRA 40 MG/0.8 ML PEN [Suspect]
     Indication: PSORIASIS
  2. POTASSIUM [Concomitant]
     Indication: MINERAL SUPPLEMENTATION
     Route: 048
  3. LOPRESSOR [Concomitant]
     Indication: HYPERTENSION
     Dosage: ER DAILY
     Route: 048
  4. HYZAAR [Concomitant]
     Indication: HYPERTENSION
     Dosage: 100/25 MG DAILY
     Route: 048
  5. ASPIRIN [Concomitant]
     Indication: PROPHYLAXIS
     Route: 048

REACTIONS (2)
  - Gastric disorder [Not Recovered/Not Resolved]
  - Flatulence [Not Recovered/Not Resolved]
